FAERS Safety Report 19009297 (Version 1)
Quarter: 2021Q1

REPORT INFORMATION
  Report Type: Report from Study
  Country: US (occurrence: US)
  Receive Date: 20210315
  Receipt Date: 20210315
  Transmission Date: 20210420
  Serious: Yes (Other)
  Sender: FDA-Public Use
  Company Number: US-BAYER-2021-094704

PATIENT
  Sex: Male

DRUGS (4)
  1. STIVARGA [Suspect]
     Active Substance: REGORAFENIB
     Indication: COLORECTAL CANCER
     Dosage: 80 MG DAILY
     Route: 048
  2. STIVARGA [Suspect]
     Active Substance: REGORAFENIB
     Indication: COLORECTAL CANCER
     Dosage: 40 MG DAILY
     Route: 048
     Dates: start: 2020
  3. STIVARGA [Suspect]
     Active Substance: REGORAFENIB
     Indication: COLORECTAL CANCER
     Dosage: 120 MG DAILY
     Route: 048
  4. STIVARGA [Suspect]
     Active Substance: REGORAFENIB
     Indication: COLORECTAL CANCER
     Dosage: 80 MG DAILY FOR 21 DAYS ON/ 7 DAYS OFF
     Route: 048

REACTIONS (6)
  - Neuropathy peripheral [Unknown]
  - Pneumonia [Recovered/Resolved]
  - Hyperkeratosis [Unknown]
  - Taste disorder [Unknown]
  - Off label use [None]
  - Paraesthesia [Unknown]
